FAERS Safety Report 8969344 (Version 1)
Quarter: 2012Q4

REPORT INFORMATION
  Report Type: 
  Country: US (occurrence: US)
  Receive Date: 20121218
  Receipt Date: 20121218
  Transmission Date: 20130627
  Serious: No
  Sender: FDA-Public Use
  Company Number: US-BRISTOL-MYERS SQUIBB COMPANY-16282840

PATIENT
  Age: 5 Year
  Sex: Female
  Weight: 29 kg

DRUGS (2)
  1. ABILIFY [Suspect]
     Dosage: 2 months ago
Prescription #: 6262005
stopped 3 days ago
  2. TRAZODONE HCL [Concomitant]
     Dosage: at bedtime

REACTIONS (1)
  - Logorrhoea [Unknown]
